FAERS Safety Report 4349103-0 (Version None)
Quarter: 2004Q2

REPORT INFORMATION
  Report Type: 
  Country: None (occurrence: None)
  Receive Date: 20040427
  Receipt Date: 20040427
  Transmission Date: 20050107
  Serious: Yes (Hospitalization)
  Sender: FDA-Public Use
  Company Number: None

PATIENT
  Sex: Male

DRUGS (4)
  1. SIMVASTATIN [Suspect]
     Indication: HYPERLIPIDAEMIA
     Dosage: 40 MG DAILY ORAL
     Route: 048
     Dates: start: 20030508, end: 20031001
  2. ATENOLOL [Concomitant]
  3. FINASTERIDE [Concomitant]
  4. VALSARTAN [Concomitant]

REACTIONS (1)
  - RHABDOMYOLYSIS [None]
